FAERS Safety Report 10684545 (Version 1)
Quarter: 2014Q4

REPORT INFORMATION
  Report Type: Spontaneous
  Country: US (occurrence: None)
  Receive Date: 20141230
  Receipt Date: 20141230
  Transmission Date: 20150529
  Serious: Yes (Disabling)
  Sender: FDA-Public Use
  Company Number: None

PATIENT
  Age: 64 Year
  Sex: Male
  Weight: 81.65 kg

DRUGS (3)
  1. LAMICTAL [Concomitant]
     Active Substance: LAMOTRIGINE
  2. CELEXA [Concomitant]
     Active Substance: CITALOPRAM HYDROBROMIDE
  3. ABILIFY [Suspect]
     Active Substance: ARIPIPRAZOLE

REACTIONS (3)
  - Sleep disorder [None]
  - Agitation [None]
  - Drug withdrawal syndrome [None]

NARRATIVE: CASE EVENT DATE: 20141015
